FAERS Safety Report 13393191 (Version 1)
Quarter: 2017Q1

REPORT INFORMATION
  Report Type: Spontaneous
  Country: None (occurrence: US)
  Receive Date: 20170331
  Receipt Date: 20170331
  Transmission Date: 20170429
  Serious: No
  Sender: FDA-Public Use
  Company Number: US-MERZ NORTH AMERICA, INC.-17MRZ-00109

PATIENT
  Age: 9 Decade

DRUGS (1)
  1. XEOMIN [Suspect]
     Active Substance: INCOBOTULINUMTOXINA
     Indication: OESOPHAGEAL ACHALASIA
     Dosage: (1 IN 1 TOTAL)
     Route: 030

REACTIONS (2)
  - Oral submucosal fibrosis [Unknown]
  - Off label use [Unknown]
